FAERS Safety Report 4944172-9 (Version None)
Quarter: 2006Q1

REPORT INFORMATION
  Report Type: 
  Country: None (occurrence: None)
  Receive Date: 20060315
  Receipt Date: 20060307
  Transmission Date: 20060701
  Serious: Yes (Hospitalization, Other)
  Sender: FDA-Public Use
  Company Number: US-BRISTOL-MYERS SQUIBB COMPANY-13306766

PATIENT
  Sex: Male
  Weight: 85 kg

DRUGS (10)
  1. ERBITUX [Suspect]
     Route: 042
     Dates: start: 20060302, end: 20060302
  2. CISPLATIN [Suspect]
     Dates: start: 20060221, end: 20060221
  3. PLAVIX [Suspect]
  4. RADIATION THERAPY [Suspect]
     Indication: NEOPLASM MALIGNANT
     Dates: start: 20060131
  5. EMEND [Concomitant]
     Indication: PREMEDICATION
  6. ACIPHEX [Concomitant]
  7. NEURONTIN [Concomitant]
  8. FENTANYL [Concomitant]
  9. ATIVAN [Concomitant]
  10. ZOFRAN [Concomitant]

REACTIONS (5)
  - DERMATITIS ACNEIFORM [None]
  - NAUSEA [None]
  - PYREXIA [None]
  - RADIATION SKIN INJURY [None]
  - VOMITING [None]
